FAERS Safety Report 10205739 (Version 1)
Quarter: 2014Q2

REPORT INFORMATION
  Report Type: Spontaneous
  Country: US (occurrence: US)
  Receive Date: 20140530
  Receipt Date: 20140530
  Transmission Date: 20141212
  Serious: Yes (Other)
  Sender: FDA-Public Use
  Company Number: US-BEH-2014042734

PATIENT
  Age: 70 Year
  Sex: Female
  Weight: 61 kg

DRUGS (13)
  1. HIZENTRA [Suspect]
     Dosage: 3 SITES OVER 1-2 HOURS
     Route: 058
  2. ACETAMINOPHEN [Concomitant]
  3. DIPHENHYDRAMINE [Concomitant]
  4. LIDOCAINE [Concomitant]
  5. EPI PEN [Concomitant]
  6. SINGULAIR [Concomitant]
  7. FLUTICASONE [Concomitant]
  8. ALLEGRA [Concomitant]
  9. GABAPENTIN [Concomitant]
  10. PRILOSEC [Concomitant]
  11. OXYCONTIN [Concomitant]
  12. NITROGLYCERIN [Concomitant]
  13. VYTORIN [Concomitant]

REACTIONS (2)
  - Loss of consciousness [Unknown]
  - Spinal column stenosis [Unknown]
